FAERS Safety Report 5726663-6 (Version None)
Quarter: 2008Q2

REPORT INFORMATION
  Report Type: 
  Country: None (occurrence: None)
  Receive Date: 20080502
  Receipt Date: 20080424
  Transmission Date: 20081010
  Serious: Yes (Hospitalization, Other)
  Sender: FDA-Public Use
  Company Number: FR-ROCHE-546568

PATIENT
  Age: 15 Year
  Sex: Male

DRUGS (6)
  1. TAMIFLU [Suspect]
     Indication: INFLUENZA
     Route: 065
     Dates: start: 20080123, end: 20080128
  2. TOPLEXIL [Concomitant]
     Route: 048
     Dates: start: 20080123, end: 20080125
  3. TOPLEXIL [Concomitant]
     Route: 048
     Dates: start: 20080123, end: 20080125
  4. TOPLEXIL [Concomitant]
     Route: 048
     Dates: start: 20080123, end: 20080125
  5. TOPLEXIL [Concomitant]
     Route: 048
     Dates: start: 20080123, end: 20080125
  6. DOLIPRANE [Concomitant]
     Route: 048
     Dates: start: 20080123, end: 20080125

REACTIONS (5)
  - ASTHENIA [None]
  - CONFUSIONAL STATE [None]
  - PERSONALITY DISORDER [None]
  - SOMNOLENCE [None]
  - VERTIGO [None]
